FAERS Safety Report 9610630 (Version 1)
Quarter: 2013Q4

REPORT INFORMATION
  Report Type: Spontaneous
  Country: AR (occurrence: AR)
  Receive Date: 20131009
  Receipt Date: 20131009
  Transmission Date: 20140711
  Serious: Yes (Other)
  Sender: FDA-Public Use
  Company Number: AR-TEVA-436549ISR

PATIENT
  Age: 55 Year
  Sex: Female

DRUGS (4)
  1. LORAZEPAM [Suspect]
     Indication: OVERDOSE
     Dosage: 90 MILLIGRAM DAILY;
     Route: 048
  2. ZOPICLONE [Suspect]
     Indication: OVERDOSE
     Dosage: 150 MILLIGRAM DAILY;
     Route: 048
  3. AGOMELATINE [Suspect]
     Indication: OVERDOSE
     Dosage: 350 MILLIGRAM DAILY;
     Route: 048
  4. TRIMIPRAMINE [Suspect]
     Indication: OVERDOSE
     Dosage: 3000 MILLIGRAM DAILY;
     Route: 048

REACTIONS (5)
  - Coma [Unknown]
  - Somnolence [Unknown]
  - Condition aggravated [Unknown]
  - Electrocardiogram QT prolonged [Recovered/Resolved]
  - Overdose [Unknown]
